FAERS Safety Report 5565962-8 (Version None)
Quarter: 2007Q4

REPORT INFORMATION
  Report Type: 
  Country: None (occurrence: None)
  Receive Date: 20071219
  Receipt Date: 20071212
  Transmission Date: 20080405
  Serious: Yes (Hospitalization)
  Sender: FDA-Public Use
  Company Number: US-JNJFOC-20071203910

PATIENT
  Sex: Female
  Weight: 90.72 kg

DRUGS (3)
  1. DURAGESIC-100 [Suspect]
     Indication: PAIN
     Route: 062
  2. DEPAKOTE [Concomitant]
     Indication: CONVULSION
     Route: 048
  3. LYRICA [Concomitant]
     Indication: NEURALGIA
     Route: 048

REACTIONS (2)
  - NERVE INJURY [None]
  - WRONG TECHNIQUE IN DRUG USAGE PROCESS [None]
